FAERS Safety Report 24742648 (Version 1)
Quarter: 2024Q4

REPORT INFORMATION
  Report Type: Spontaneous
  Country: US (occurrence: US)
  Receive Date: 20241217
  Receipt Date: 20241217
  Transmission Date: 20250114
  Serious: Yes (Other)
  Sender: AMGEN
  Company Number: US-AMGEN-USASP2024244031

PATIENT
  Age: 85 Year
  Sex: Female

DRUGS (1)
  1. PREDNISONE [Suspect]
     Active Substance: PREDNISONE
     Indication: Autoimmune thyroiditis
     Dosage: UNK
     Route: 065

REACTIONS (5)
  - Plasma cell myeloma [Unknown]
  - Hyperthyroidism [Recovered/Resolved]
  - Transitional cell carcinoma [Unknown]
  - Loss of therapeutic response [Unknown]
  - Post procedural hypothyroidism [Unknown]
